FAERS Safety Report 8591414-7 (Version None)
Quarter: 2012Q3

REPORT INFORMATION
  Report Type: 
  Country: None (occurrence: None)
  Receive Date: 20120803
  Receipt Date: 20120803
  Transmission Date: 20120928
  Serious: Yes (Other)
  Sender: FDA-Public Use
  Company Number: None

PATIENT
  Age: 27 Year
  Sex: Female
  Weight: 50.8029 kg

DRUGS (1)
  1. LO LOESTRIN FE [Suspect]
     Indication: CONTRACEPTION
     Dosage: 1MG/10MCG 1 DAILY PO
     Route: 048
     Dates: start: 20120323, end: 20120612

REACTIONS (4)
  - OVARIAN CYST [None]
  - PELVIC PAIN [None]
  - DYSPNOEA [None]
  - THROMBOSIS [None]
